FAERS Safety Report 25483179 (Version 1)
Quarter: 2025Q2

REPORT INFORMATION
  Report Type: Spontaneous
  Country: MA (occurrence: MA)
  Receive Date: 20250626
  Receipt Date: 20250626
  Transmission Date: 20250717
  Serious: Yes (Hospitalization, Other)
  Sender: UNICHEM
  Company Number: MA-UNICHEM LABORATORIES LIMITED-UNI-2025-MA-002544

PATIENT

DRUGS (3)
  1. METRONIDAZOLE [Suspect]
     Active Substance: METRONIDAZOLE
     Indication: Osteomyelitis
     Route: 042
  2. METRONIDAZOLE [Suspect]
     Active Substance: METRONIDAZOLE
     Route: 048
  3. METRONIDAZOLE [Suspect]
     Active Substance: METRONIDAZOLE
     Route: 065

REACTIONS (1)
  - Neurotoxicity [Recovered/Resolved]
